FAERS Safety Report 23076547 (Version 1)
Quarter: 2023Q4

REPORT INFORMATION
  Report Type: Spontaneous
  Country: JP (occurrence: JP)
  Receive Date: 20231017
  Receipt Date: 20231017
  Transmission Date: 20240110
  Serious: Yes (Hospitalization)
  Sender: FDA-Public Use
  Company Number: JP-WOODWARD-2023-JP-000372

PATIENT
  Age: 64 Year
  Sex: Male
  Weight: 66.1 kg

DRUGS (6)
  1. RABEPRAZOLE SODIUM [Suspect]
     Active Substance: RABEPRAZOLE SODIUM
     Indication: Prophylaxis against gastrointestinal ulcer
     Route: 048
  2. PAZOPANIB [Suspect]
     Active Substance: PAZOPANIB
     Indication: Renal cancer
     Route: 048
  3. FEBUXOSTAT [Concomitant]
     Active Substance: FEBUXOSTAT
     Indication: Hyperuricaemia
     Dosage: 10 MG,1 D
     Route: 048
  4. AMLODIPINE BESYLATE [Concomitant]
     Active Substance: AMLODIPINE BESYLATE
     Indication: Hypertension
     Dosage: 10 MG,1 D
     Route: 048
  5. LEVOTHYROXINE SODIUM [Concomitant]
     Active Substance: LEVOTHYROXINE SODIUM
     Indication: Hypothyroidism
     Dosage: 50 MCG,1 D
     Route: 048
  6. LOXOPROFEN SODIUM DIHYDRATE [Concomitant]
     Active Substance: LOXOPROFEN SODIUM DIHYDRATE
     Indication: Clear cell renal cell carcinoma
     Dosage: 60 MG,8 HR / 100 MG,1 D
     Route: 050

REACTIONS (4)
  - Malignant pleural effusion [Unknown]
  - Pleural effusion [Recovered/Resolved]
  - Drug interaction [Unknown]
  - Concomitant drug effect decreased [Unknown]
